FAERS Safety Report 7722737-9 (Version None)
Quarter: 2011Q3

REPORT INFORMATION
  Report Type: 
  Country: None (occurrence: None)
  Receive Date: 20110831
  Receipt Date: 20110822
  Transmission Date: 20111222
  Serious: Yes (Hospitalization)
  Sender: FDA-Public Use
  Company Number: US-AMGEN-USASP2011043157

PATIENT
  Age: 43 Year
  Sex: Male
  Weight: 96.145 kg

DRUGS (1)
  1. PROCRIT [Suspect]
     Indication: RENAL DISORDER
     Dosage: 30000 IU, Q2WK
     Route: 058
     Dates: start: 20030101

REACTIONS (4)
  - ARTERIAL BYPASS OPERATION [None]
  - HOSPITALISATION [None]
  - CEREBROVASCULAR ACCIDENT [None]
  - PERIPHERAL ARTERY ANEURYSM [None]
